FAERS Safety Report 12457682 (Version 1)
Quarter: 2016Q2

REPORT INFORMATION
  Report Type: Spontaneous
  Country: GB (occurrence: GB)
  Receive Date: 20160610
  Receipt Date: 20160610
  Transmission Date: 20160815
  Serious: Yes (Other)
  Sender: FDA-Public Use
  Company Number: GB-ASTRAZENECA-2016SE10841

PATIENT
  Sex: Male

DRUGS (4)
  1. CRESTOR [Suspect]
     Active Substance: ROSUVASTATIN CALCIUM
     Indication: BLOOD CHOLESTEROL INCREASED
     Dosage: OTHER BRANDS, GERMANY
     Route: 065
  2. CENTE HYPORIN BOUINE [Concomitant]
     Dosage: 25.0IU UNKNOWN
     Route: 042
     Dates: start: 1976
  3. CRESTOR [Suspect]
     Active Substance: ROSUVASTATIN CALCIUM
     Indication: BLOOD CHOLESTEROL INCREASED
     Dosage: OTHER BRANDS, FRANCE
     Route: 065
  4. CRESTOR [Suspect]
     Active Substance: ROSUVASTATIN CALCIUM
     Indication: BLOOD CHOLESTEROL INCREASED
     Route: 048
     Dates: start: 1984

REACTIONS (8)
  - Malaise [Unknown]
  - Fall [Unknown]
  - Drug ineffective [Unknown]
  - Burning sensation [Unknown]
  - Blood cholesterol increased [Unknown]
  - Product use issue [Unknown]
  - Erythema [Unknown]
  - Abdominal discomfort [Unknown]
